FAERS Safety Report 13770222 (Version 3)
Quarter: 2017Q3

REPORT INFORMATION
  Report Type: Report from Study
  Country: US (occurrence: US)
  Receive Date: 20170719
  Receipt Date: 20170807
  Transmission Date: 20171127
  Serious: No
  Sender: FDA-Public Use
  Company Number: US-009507513-1707USA006475

PATIENT
  Sex: Female

DRUGS (1)
  1. IMPLANON [Suspect]
     Active Substance: ETONOGESTREL
     Dosage: 1 DF (68 MG IMPLANT), UNK
     Route: 059
     Dates: start: 20170509

REACTIONS (2)
  - No adverse event [Unknown]
  - Device expulsion [Recovered/Resolved]
